FAERS Safety Report 8451905 (Version 2)
Quarter: 2013Q2

REPORT INFORMATION
  Report Type: Spontaneous
  Country: US (occurrence: None)
  Receive Date: 20120221
  Receipt Date: 20130226
  Transmission Date: 20140414
  Serious: Yes (Other)
  Sender: FDA-Public Use
  Company Number: PHEH2011US08374

PATIENT
  Age: 83 Year
  Sex: Female

DRUGS (2)
  1. TOBI [Suspect]
  2. AVASTIN [Concomitant]

REACTIONS (5)
  - DEAFNESS [None]
  - MACULAR DEGENERATION [None]
  - DIZZINESS [None]
  - DRUG INEFFECTIVE [None]
  - EAR DISORDER [None]
